FAERS Safety Report 5146573-5 (Version None)
Quarter: 2006Q4

REPORT INFORMATION
  Report Type: 
  Country: None (occurrence: None)
  Receive Date: 20060911
  Receipt Date: 20060601
  Transmission Date: 20070319
  Serious: No
  Sender: FDA-Public Use
  Company Number: IND-AE-06-SAN-025

PATIENT
  Age: 82 Year
  Sex: Female
  Weight: 72.5755 kg

DRUGS (4)
  1. SANCTURA [Suspect]
     Indication: HYPERTONIC BLADDER
     Dosage: 20 MG -QD-ORAL
     Route: 048
  2. ALTACE [Concomitant]
  3. ZOCOR [Concomitant]
  4. ASPIRIN [Concomitant]

REACTIONS (5)
  - ASTHENIA [None]
  - HALLUCINATION [None]
  - PRURITUS [None]
  - RASH [None]
  - VISION BLURRED [None]
